FAERS Safety Report 16082730 (Version 2)
Quarter: 2019Q4

REPORT INFORMATION
  Report Type: Spontaneous
  Country: US (occurrence: US)
  Receive Date: 20190318
  Receipt Date: 20191031
  Transmission Date: 20200122
  Serious: Yes (Other)
  Sender: FDA-Public Use
  Company Number: US-ROCHE-2282244

PATIENT
  Sex: Female
  Weight: 52.21 kg

DRUGS (4)
  1. OCREVUS [Suspect]
     Active Substance: OCRELIZUMAB
     Indication: RELAPSING-REMITTING MULTIPLE SCLEROSIS
     Dosage: HALF DOSES ;ONGOING: NO /SEP/2017, RECEIVED SAME SUBSEQUENT HALF DOSE
     Route: 065
     Dates: start: 201708, end: 201709
  2. OXYCODONE [Concomitant]
     Active Substance: OXYCODONE
     Dosage: ONGOING: NO
     Route: 065
     Dates: start: 2018
  3. SEROQUEL [Concomitant]
     Active Substance: QUETIAPINE FUMARATE
     Dosage: ONGOING: NO
     Route: 065
     Dates: start: 2018
  4. XANAX [Concomitant]
     Active Substance: ALPRAZOLAM
     Dosage: ONGOING: NO
     Route: 065
     Dates: start: 2018

REACTIONS (1)
  - Quadriplegia [Unknown]
